FAERS Safety Report 15504512 (Version 3)
Quarter: 2019Q3

REPORT INFORMATION
  Report Type: Spontaneous
  Country: CN (occurrence: CN)
  Receive Date: 20181016
  Receipt Date: 20190830
  Transmission Date: 20191004
  Serious: Yes (Death, Hospitalization, Other)
  Sender: FDA-Public Use
  Company Number: CN-SA-2018SA256521

PATIENT
  Age: 34 Year
  Sex: Male

DRUGS (18)
  1. OXALIPLATIN. [Suspect]
     Active Substance: OXALIPLATIN
     Indication: ANGIOCENTRIC LYMPHOMA
  2. ASPARAGINASE [Suspect]
     Active Substance: ASPARAGINASE
     Indication: ANGIOCENTRIC LYMPHOMA
  3. METHOTREXATE. [Suspect]
     Active Substance: METHOTREXATE
     Indication: ANGIOCENTRIC LYMPHOMA
     Dosage: UNK
     Dates: start: 2017
  4. GEMCITABINE HYDROCHLORIDE. [Suspect]
     Active Substance: GEMCITABINE HYDROCHLORIDE
     Indication: MENINGIOMA
  5. METHOTREXATE. [Suspect]
     Active Substance: METHOTREXATE
     Indication: MENINGIOMA
  6. METHOTREXATE. [Suspect]
     Active Substance: METHOTREXATE
     Indication: SCHWANNOMA
  7. METHYLPREDNISOLONE. [Concomitant]
     Active Substance: METHYLPREDNISOLONE
     Indication: SCHWANNOMA
     Dosage: UNK
     Dates: start: 201706
  8. METHYLPREDNISOLONE. [Concomitant]
     Active Substance: METHYLPREDNISOLONE
     Indication: ANGIOCENTRIC LYMPHOMA
  9. OXALIPLATIN. [Suspect]
     Active Substance: OXALIPLATIN
     Indication: SCHWANNOMA
     Dosage: UNK
     Dates: start: 2017
  10. ASPARAGINASE [Suspect]
     Active Substance: ASPARAGINASE
     Indication: MENINGIOMA
  11. GEMCITABINE HYDROCHLORIDE. [Suspect]
     Active Substance: GEMCITABINE HYDROCHLORIDE
     Indication: ANGIOCENTRIC LYMPHOMA
     Dosage: UNK
     Dates: start: 2017
  12. METHYLPREDNISOLONE. [Concomitant]
     Active Substance: METHYLPREDNISOLONE
     Indication: MENINGIOMA
  13. DEXAMETHASONE SALT NOT SPECIFIED [Suspect]
     Active Substance: DEXAMETHASONE
     Indication: ANGIOCENTRIC LYMPHOMA
     Dosage: UNK
     Dates: start: 2017
  14. OXALIPLATIN. [Suspect]
     Active Substance: OXALIPLATIN
     Indication: MENINGIOMA
  15. DEXAMETHASONE SALT NOT SPECIFIED [Suspect]
     Active Substance: DEXAMETHASONE
     Indication: MENINGIOMA
  16. DEXAMETHASONE SALT NOT SPECIFIED [Suspect]
     Active Substance: DEXAMETHASONE
     Indication: SCHWANNOMA
  17. ASPARAGINASE [Suspect]
     Active Substance: ASPARAGINASE
     Indication: SCHWANNOMA
     Dosage: UNK
     Dates: start: 2017
  18. GEMCITABINE HYDROCHLORIDE. [Suspect]
     Active Substance: GEMCITABINE HYDROCHLORIDE
     Indication: SCHWANNOMA

REACTIONS (2)
  - Infection [Fatal]
  - Neutropenia [Fatal]

NARRATIVE: CASE EVENT DATE: 2017
